FAERS Safety Report 13733920 (Version 9)
Quarter: 2018Q2

REPORT INFORMATION
  Report Type: Report from Study
  Country: US (occurrence: US)
  Receive Date: 20170707
  Receipt Date: 20180402
  Transmission Date: 20180711
  Serious: Yes (Hospitalization)
  Sender: FDA-Public Use
  Company Number: US-ACTELION-A-NJ2017-151697

PATIENT
  Age: 58 Year
  Sex: Male
  Weight: 170.98 kg

DRUGS (10)
  1. MIDODRINE HCL [Concomitant]
     Active Substance: MIDODRINE HYDROCHLORIDE
     Dosage: 5 MG, TID
  2. OPSUMIT [Suspect]
     Active Substance: MACITENTAN
     Indication: PULMONARY ARTERIAL HYPERTENSION
     Dosage: 10 MG, QD
     Route: 048
  3. ADEMPAS [Suspect]
     Active Substance: RIOCIGUAT
     Dosage: 1 MG, TID
     Route: 065
  4. OPSUMIT [Suspect]
     Active Substance: MACITENTAN
     Dosage: UNK
     Route: 048
  5. ADEMPAS [Suspect]
     Active Substance: RIOCIGUAT
     Dosage: .5 MG, TID
     Route: 065
  6. DILTIAZEM. [Concomitant]
     Active Substance: DILTIAZEM
  7. METOPROLOL. [Concomitant]
     Active Substance: METOPROLOL
     Dosage: 12.5 MG, UNK
  8. ADEMPAS [Suspect]
     Active Substance: RIOCIGUAT
     Indication: PRODUCT USED FOR UNKNOWN INDICATION
     Dosage: 1.5 MG, TID
     Route: 065
  9. ADEMPAS [Suspect]
     Active Substance: RIOCIGUAT
     Dosage: 2 MG, UNK
     Route: 065
  10. ELIQUIS [Concomitant]
     Active Substance: APIXABAN

REACTIONS (36)
  - Syncope [Unknown]
  - Dizziness [Unknown]
  - Contusion [Unknown]
  - Constipation [Unknown]
  - Decreased appetite [Unknown]
  - Blood potassium abnormal [Unknown]
  - Asthenia [Unknown]
  - Dyspnoea [Unknown]
  - Dyspnoea exertional [Unknown]
  - Fatigue [Not Recovered/Not Resolved]
  - Hypoaesthesia [Not Recovered/Not Resolved]
  - Poor quality sleep [Not Recovered/Not Resolved]
  - Muscle spasms [Unknown]
  - Electrolyte imbalance [Unknown]
  - Musculoskeletal pain [Unknown]
  - Oedema peripheral [Unknown]
  - Fall [Unknown]
  - Unevaluable event [Unknown]
  - Feeling abnormal [Unknown]
  - Skin discolouration [Unknown]
  - Bronchitis [Unknown]
  - Dehydration [Unknown]
  - Dysgeusia [Recovering/Resolving]
  - Blood pressure decreased [Unknown]
  - Dyspepsia [Unknown]
  - Weight decreased [Unknown]
  - Chest discomfort [Unknown]
  - Hypotension [Unknown]
  - Weight increased [Unknown]
  - Peripheral swelling [Unknown]
  - Loss of consciousness [Unknown]
  - Hypersensitivity [Unknown]
  - Fluid retention [Unknown]
  - Oedema [Unknown]
  - Pain in extremity [Unknown]
  - Head discomfort [Unknown]

NARRATIVE: CASE EVENT DATE: 20170520
